FAERS Safety Report 4844857-9 (Version None)
Quarter: 2005Q4

REPORT INFORMATION
  Report Type: 
  Country: None (occurrence: None)
  Receive Date: 20051205
  Receipt Date: 20051125
  Transmission Date: 20060501
  Serious: Yes (Other)
  Sender: FDA-Public Use
  Company Number: DE-JNJFOC-20051105772

PATIENT
  Age: 23 Year
  Sex: Female

DRUGS (2)
  1. RISPERDAL [Suspect]
     Route: 048
  2. RISPERDAL [Suspect]
     Route: 048

REACTIONS (4)
  - BLOOD PROLACTIN INCREASED [None]
  - GALACTORRHOEA [None]
  - OBESITY [None]
  - PITUITARY TUMOUR BENIGN [None]
